FAERS Safety Report 14037029 (Version 1)
Quarter: 2017Q4

REPORT INFORMATION
  Report Type: Spontaneous
  Country: US (occurrence: US)
  Receive Date: 20171004
  Receipt Date: 20171004
  Transmission Date: 20180321
  Serious: No
  Sender: FDA-Public Use
  Company Number: US-ELI_LILLY_AND_COMPANY-US201710000432

PATIENT
  Age: 87 Year
  Sex: Female

DRUGS (1)
  1. FORTEO [Suspect]
     Active Substance: TERIPARATIDE
     Indication: OSTEOPOROSIS
     Dosage: UNK, DAILY
     Route: 065
     Dates: start: 201603

REACTIONS (6)
  - Limb injury [Unknown]
  - Fall [Unknown]
  - Joint injury [Unknown]
  - Product storage error [Unknown]
  - Drug dose omission [Unknown]
  - Mouth injury [Unknown]

NARRATIVE: CASE EVENT DATE: 20170926
